FAERS Safety Report 6166695-X (Version None)
Quarter: 2009Q2

REPORT INFORMATION
  Report Type: 
  Country: None (occurrence: None)
  Receive Date: 20090424
  Receipt Date: 20090305
  Transmission Date: 20091009
  Serious: Yes (Hospitalization)
  Sender: FDA-Public Use
  Company Number: US-PFIZER INC-2008038960

PATIENT
  Sex: Male
  Weight: 90.703 kg

DRUGS (4)
  1. BLINDED *PLACEBO [Suspect]
     Indication: MANIA
     Dosage: UNK
     Dates: start: 20080416, end: 20080504
  2. BLINDED ZIPRASIDONE HCL [Suspect]
     Indication: MANIA
     Dosage: UNK
     Dates: start: 20080416, end: 20080504
  3. DEPAKOTE [Concomitant]
     Route: 048
     Dates: start: 20080415
  4. AMBIEN [Concomitant]
     Route: 048

REACTIONS (2)
  - MULTIPLE DRUG OVERDOSE [None]
  - SUICIDAL IDEATION [None]
